FAERS Safety Report 17039595 (Version 1)
Quarter: 2019Q4

REPORT INFORMATION
  Report Type: Spontaneous
  Country: CN (occurrence: CN)
  Receive Date: 20191115
  Receipt Date: 20191115
  Transmission Date: 20200122
  Serious: Yes (Other)
  Sender: FDA-Public Use
  Company Number: CN-BAXTER-2019BAX022816

PATIENT
  Age: 61 Year
  Sex: Female
  Weight: 52 kg

DRUGS (1)
  1. METRONIDAZOLE AND SODIUM CHLORIDE INJECTION [Suspect]
     Active Substance: METRONIDAZOLE\SODIUM CHLORIDE
     Indication: TOOTH ABSCESS
     Route: 041
     Dates: start: 20191104, end: 20191104

REACTIONS (4)
  - Discomfort [Recovering/Resolving]
  - Chest discomfort [Recovering/Resolving]
  - Dizziness [Recovering/Resolving]
  - Flushing [Recovering/Resolving]

NARRATIVE: CASE EVENT DATE: 20191104
